FAERS Safety Report 25318721 (Version 2)
Quarter: 2025Q3

REPORT INFORMATION
  Report Type: Spontaneous
  Country: US (occurrence: US)
  Receive Date: 20250515
  Receipt Date: 20250706
  Transmission Date: 20251021
  Serious: No
  Sender: LUPIN
  Company Number: US-LUPIN PHARMACEUTICALS INC.-2025-03936

PATIENT

DRUGS (1)
  1. TIOTROPIUM BROMIDE [Suspect]
     Active Substance: TIOTROPIUM BROMIDE
     Indication: Product used for unknown indication

REACTIONS (5)
  - Illness [Unknown]
  - Respiratory rate decreased [Unknown]
  - Device delivery system issue [Unknown]
  - Device mechanical issue [Unknown]
  - Incorrect dose administered [Unknown]
